FAERS Safety Report 22149588 (Version 1)
Quarter: 2023Q1

REPORT INFORMATION
  Report Type: Other
  Country: GB (occurrence: GB)
  Receive Date: 20230329
  Receipt Date: 20230329
  Transmission Date: 20230417
  Serious: Yes (Other)
  Sender: FDA-Public Use
  Company Number: GB-MACLEODS PHARMA EU LTD-MAC2023039831

PATIENT

DRUGS (13)
  1. LEVOFLOXACIN [Suspect]
     Active Substance: LEVOFLOXACIN
     Indication: Ill-defined disorder
     Dosage: 250 MILLIGRAM, QD; 1 DOSAGE FORM DAILY FOR 5 DAYS
     Route: 048
     Dates: start: 20230122, end: 20230205
  2. LEVOFLOXACIN [Suspect]
     Active Substance: LEVOFLOXACIN
     Dosage: UNK
     Route: 048
     Dates: start: 20230206
  3. ACYCLOVIR [Concomitant]
     Active Substance: ACYCLOVIR
     Indication: Ill-defined disorder
     Dosage: 1 DOSAGE FORM, BID; 08:00, 20:00
     Route: 048
     Dates: start: 20230122, end: 20230205
  4. ALLOPURINOL [Concomitant]
     Active Substance: ALLOPURINOL
     Indication: Ill-defined disorder
     Dosage: 1 DOSAGE FORM, QD; 08:00
     Route: 048
     Dates: start: 20230122, end: 20230205
  5. AZTREONAM [Concomitant]
     Active Substance: AZTREONAM
     Indication: Ill-defined disorder
     Dosage: 1.5 GRAM
     Route: 065
     Dates: start: 20230121, end: 20230122
  6. CHLORPHENIRAMINE MALEATE [Concomitant]
     Active Substance: CHLORPHENIRAMINE MALEATE
     Indication: Ill-defined disorder
     Dosage: 1 DOSAGE FORM, TID; 08:00, 14:00, 22:00
     Route: 048
     Dates: start: 20230122, end: 20230205
  7. COTRIMOXAZOLE [Concomitant]
     Active Substance: SULFAMETHOXAZOLE\TRIMETHOPRIM
     Indication: Ill-defined disorder
     Dosage: 1 DOSAGE FORM, QD
     Route: 065
     Dates: start: 20230122, end: 20230205
  8. FLUCONAZOLE [Concomitant]
     Active Substance: FLUCONAZOLE
     Indication: Ill-defined disorder
     Dosage: 1 DOSAGE FORM, QD; 8:00
     Route: 048
     Dates: start: 20230122, end: 20230205
  9. MESALAMINE [Concomitant]
     Active Substance: MESALAMINE
     Indication: Ill-defined disorder
     Dosage: UNK UNK, PRN; INSERT ONE AT NIGHT WHEN REQUIRED
     Route: 065
     Dates: start: 20200629
  10. FILGRASTIM [Concomitant]
     Active Substance: FILGRASTIM
     Indication: Ill-defined disorder
     Dosage: 350 MICROGRAM
     Route: 065
     Dates: start: 20230121, end: 20230121
  11. MESALAMINE [Concomitant]
     Active Substance: MESALAMINE
     Indication: Ill-defined disorder
     Dosage: 2 DOSAGE FORM, QD; IN THE MORNING
     Route: 065
     Dates: start: 20220225
  12. ACETAMINOPHEN [Concomitant]
     Active Substance: ACETAMINOPHEN
     Indication: Ill-defined disorder
     Dosage: 2 DOSAGE FORM, PRN; TAKE: NO MORE THAN 8 TABLET IN 24 HOURS. MINIMUM INTERVAL: 6 HOURS
     Route: 065
     Dates: start: 20230122, end: 20230205
  13. SODIUM CHLORIDE [Concomitant]
     Active Substance: SODIUM CHLORIDE
     Indication: Ill-defined disorder
     Dosage: 5 MILLILITER
     Route: 065
     Dates: start: 20230120, end: 20230122

REACTIONS (5)
  - Musculoskeletal stiffness [Unknown]
  - Tendonitis [Recovering/Resolving]
  - Neuropathy peripheral [Recovering/Resolving]
  - Tendonitis [Recovering/Resolving]
  - Tendon pain [Recovering/Resolving]

NARRATIVE: CASE EVENT DATE: 20230206
